FAERS Safety Report 18139279 (Version 1)
Quarter: 2020Q3

REPORT INFORMATION
  Report Type: Spontaneous
  Country: FR (occurrence: FR)
  Receive Date: 20200812
  Receipt Date: 20200812
  Transmission Date: 20201103
  Serious: Yes (Death, Hospitalization)
  Sender: FDA-Public Use
  Company Number: FR-TEVA-2020-FR-1797076

PATIENT
  Age: 64 Year
  Sex: Male
  Weight: 70 kg

DRUGS (4)
  1. OXALIPLATINE TEVA 5 MG/ML [Suspect]
     Active Substance: OXALIPLATIN
     Indication: OESOPHAGEAL SQUAMOUS CELL CARCINOMA
     Dosage: 150 MG PER COURSE
     Route: 042
     Dates: start: 20200304, end: 20200415
  2. FLUOROURACILE ACCORD 50 MG/ML [Suspect]
     Active Substance: FLUOROURACIL
     Dosage: 4550 MG OVER TWO DAYS
     Dates: end: 20200415
  3. FOLINIC ACID [Concomitant]
     Active Substance: LEUCOVORIN
     Indication: OESOPHAGEAL SQUAMOUS CELL CARCINOMA
     Dates: start: 20200304, end: 20200415
  4. FLUOROURACILE ACCORD 50 MG/ML [Suspect]
     Active Substance: FLUOROURACIL
     Indication: OESOPHAGEAL SQUAMOUS CELL CARCINOMA
     Dosage: 700 MG
     Route: 040
     Dates: start: 20200304

REACTIONS (4)
  - Oxygen saturation decreased [Unknown]
  - Choking sensation [Unknown]
  - Lung disorder [Fatal]
  - Dyspnoea [Unknown]

NARRATIVE: CASE EVENT DATE: 202005
